FAERS Safety Report 19230549 (Version 1)
Quarter: 2021Q2

REPORT INFORMATION
  Report Type: Spontaneous
  Country: US (occurrence: US)
  Receive Date: 20210506
  Receipt Date: 20210506
  Transmission Date: 20210717
  Serious: Yes (Hospitalization)
  Sender: FDA-Public Use
  Company Number: None

PATIENT
  Sex: Male

DRUGS (8)
  1. GENOTROPIN [Concomitant]
     Active Substance: SOMATROPIN
  2. FLUCONAZOLE. [Concomitant]
     Active Substance: FLUCONAZOLE
  3. GENTAMICIN. [Concomitant]
     Active Substance: GENTAMICIN
  4. SILDENAFIL. [Suspect]
     Active Substance: SILDENAFIL
     Indication: PULMONARY HYPERTENSION
     Dosage: ?          OTHER FREQUENCY:Q8HR ;?
     Route: 048
     Dates: start: 20200124
  5. CETIRIZINE [Concomitant]
     Active Substance: CETIRIZINE HYDROCHLORIDE
  6. EPOGEN [Concomitant]
     Active Substance: ERYTHROPOIETIN
  7. CEFEPIME [Concomitant]
     Active Substance: CEFEPIME HYDROCHLORIDE
  8. ONDANESETRON [Concomitant]

REACTIONS (1)
  - Renal transplant [None]
